FAERS Safety Report 6462483-5 (Version None)
Quarter: 2009Q4

REPORT INFORMATION
  Report Type: 
  Country: None (occurrence: None)
  Receive Date: 20091130
  Receipt Date: 20091117
  Transmission Date: 20100525
  Serious: Yes (Death)
  Sender: FDA-Public Use
  Company Number: FR-ELI_LILLY_AND_COMPANY-FR200910007702

PATIENT
  Age: 86 Year
  Sex: Female

DRUGS (7)
  1. FORTEO [Suspect]
     Indication: OSTEOPOROSIS
     Dosage: 20 UG, DAILY (1/D)
     Route: 058
     Dates: start: 20080723
  2. PREVISCAN [Concomitant]
  3. AMLOR [Concomitant]
  4. NITROGLYCERIN [Concomitant]
  5. CORVASAL [Concomitant]
  6. ZESTORETIC [Concomitant]
  7. BISOPROLOL [Concomitant]

REACTIONS (1)
  - CARDIAC FAILURE [None]
